FAERS Safety Report 4709921-3 (Version None)
Quarter: 2005Q3

REPORT INFORMATION
  Report Type: 
  Country: None (occurrence: None)
  Receive Date: 20050708
  Receipt Date: 20050615
  Transmission Date: 20060218
  Serious: Yes (Congenital Anomaly)
  Sender: FDA-Public Use
  Company Number: US-ROCHE-407816

PATIENT
  Sex: Female
  Weight: 3.7 kg

DRUGS (2)
  1. COPEGUS [Suspect]
     Indication: DRUG USE FOR UNKNOWN INDICATION
     Dates: start: 20040929
  2. PEGASYS [Suspect]
     Indication: DRUG USE FOR UNKNOWN INDICATION
     Dates: start: 20040929

REACTIONS (4)
  - CONGENITAL ANOMALY IN OFFSPRING [None]
  - POLYDACTYLY [None]
  - TOOTH DISORDER [None]
  - TRANSMISSION OF DRUG VIA SEMEN [None]
